FAERS Safety Report 7831523-0 (Version None)
Quarter: 2011Q4

REPORT INFORMATION
  Report Type: 
  Country: None (occurrence: None)
  Receive Date: 20111021
  Receipt Date: 20111012
  Transmission Date: 20120403
  Serious: Yes (Other)
  Sender: FDA-Public Use
  Company Number: PHHY2011JP90805

PATIENT

DRUGS (3)
  1. DIOVAN [Suspect]
     Dosage: UNK
     Route: 048
  2. AMLODIPINE BESYLATE [Suspect]
     Dosage: UNK
  3. PRAVASTATIN SODIUM [Suspect]
     Dosage: UNK

REACTIONS (3)
  - GASTRIC CANCER [None]
  - IRON DEFICIENCY ANAEMIA [None]
  - MELANOSIS [None]
